FAERS Safety Report 8795556 (Version 2)
Quarter: 2013Q1

REPORT INFORMATION
  Report Type: Spontaneous
  Country: US (occurrence: US)
  Receive Date: 20120917
  Receipt Date: 20130109
  Transmission Date: 20140127
  Serious: No
  Sender: FDA-Public Use
  Company Number: US-PFIZER INC-2012228832

PATIENT
  Sex: Male

DRUGS (1)
  1. EFFEXOR XR [Suspect]
     Dosage: UNK

REACTIONS (5)
  - Incorrect drug administration duration [Unknown]
  - Fungal infection [Unknown]
  - Constipation [Unknown]
  - Malaise [Unknown]
  - Speech disorder [Unknown]
